FAERS Safety Report 5561117-1 (Version None)
Quarter: 2007Q4

REPORT INFORMATION
  Report Type: 
  Country: None (occurrence: None)
  Receive Date: 20071215
  Receipt Date: 20071031
  Transmission Date: 20080405
  Serious: No
  Sender: FDA-Public Use
  Company Number: US-AMGEN-KDL250599

PATIENT
  Sex: Female

DRUGS (3)
  1. ENBREL [Suspect]
     Indication: RHEUMATOID ARTHRITIS
     Route: 058
     Dates: start: 20070701
  2. PLAQUENIL [Concomitant]
     Dates: start: 20020501
  3. METHOTREXATE [Concomitant]
     Dates: start: 20050501

REACTIONS (5)
  - CHEST DISCOMFORT [None]
  - HEPATIC ENZYME INCREASED [None]
  - PHARYNGOLARYNGEAL PAIN [None]
  - SINUSITIS [None]
  - UPPER RESPIRATORY TRACT INFECTION [None]
